FAERS Safety Report 7196862-8 (Version None)
Quarter: 2010Q4

REPORT INFORMATION
  Report Type: 
  Country: None (occurrence: None)
  Receive Date: 20101223
  Receipt Date: 20101206
  Transmission Date: 20110411
  Serious: No
  Sender: FDA-Public Use
  Company Number: US-AMGEN-USASP2010000763

PATIENT

DRUGS (4)
  1. ENBREL [Suspect]
     Indication: PSORIASIS
     Dosage: 50 MG, QWK
     Dates: start: 20100201, end: 20101112
  2. SORIATANE [Concomitant]
     Dosage: UNK
     Dates: start: 20091210, end: 20100302
  3. TAC [Suspect]
     Dosage: UNK
     Dates: start: 20101013
  4. WELLBUTRIN [Concomitant]

REACTIONS (1)
  - WEIGHT INCREASED [None]
